FAERS Safety Report 8435374-8 (Version None)
Quarter: 2012Q2

REPORT INFORMATION
  Report Type: 
  Country: None (occurrence: None)
  Receive Date: 20120614
  Receipt Date: 20120601
  Transmission Date: 20120825
  Serious: Yes (Hospitalization)
  Sender: FDA-Public Use
  Company Number: PHHY2012JP040666

PATIENT
  Age: 75 Year
  Sex: Male

DRUGS (2)
  1. SEROQUEL [Suspect]
     Dosage: 12.5 MG, DAILY
     Route: 048
     Dates: start: 20120101, end: 20120510
  2. VOLTAREN [Suspect]
     Indication: PYREXIA
     Dosage: UNK UKN, UNK
     Route: 054

REACTIONS (2)
  - WHITE BLOOD CELL COUNT DECREASED [None]
  - PLATELET COUNT DECREASED [None]
